FAERS Safety Report 4768962-0 (Version None)
Quarter: 2005Q3

REPORT INFORMATION
  Report Type: 
  Country: None (occurrence: None)
  Receive Date: 20050914
  Receipt Date: 20050902
  Transmission Date: 20060218
  Serious: Yes (Life-Threatening, Disabling)
  Sender: FDA-Public Use
  Company Number: RENA-11431

PATIENT
  Age: 57 Year
  Sex: Female

DRUGS (4)
  1. PHOSBLOCK - 250 MG TABLET [Suspect]
     Indication: HYPERPHOSPHATAEMIA
     Dosage: 0.25 G TID PO
     Route: 048
     Dates: start: 20050414, end: 20050615
  2. GIGOXIN [Concomitant]
  3. FUROSEMIDE [Concomitant]
  4. ASPIRIN [Concomitant]

REACTIONS (1)
  - LARGE INTESTINE PERFORATION [None]
